FAERS Safety Report 18000223 (Version 1)
Quarter: 2020Q3

REPORT INFORMATION
  Report Type: Spontaneous
  Country: FR (occurrence: FR)
  Receive Date: 20200709
  Receipt Date: 20200709
  Transmission Date: 20201103
  Serious: Yes (Hospitalization)
  Sender: FDA-Public Use
  Company Number: FR-ACCORD-189752

PATIENT
  Age: 71 Year
  Sex: Female
  Weight: 61 kg

DRUGS (1)
  1. OXALIPLATIN ACCORD [Suspect]
     Active Substance: OXALIPLATIN
     Indication: METASTASES TO LIVER
     Route: 013
     Dates: start: 20190211

REACTIONS (2)
  - Catheter site extravasation [Recovered/Resolved with Sequelae]
  - Dermo-hypodermitis [Recovered/Resolved with Sequelae]

NARRATIVE: CASE EVENT DATE: 201903
